FAERS Safety Report 23914075 (Version 3)
Quarter: 2024Q3

REPORT INFORMATION
  Report Type: Report from Study
  Country: CA (occurrence: CA)
  Receive Date: 20240529
  Receipt Date: 20240729
  Transmission Date: 20241017
  Serious: Yes (Other)
  Sender: ABBVIE
  Company Number: CA-ABBVIE-5779093

PATIENT
  Age: 67 Year
  Sex: Female

DRUGS (1)
  1. SKYRIZI [Suspect]
     Active Substance: RISANKIZUMAB-RZAA
     Indication: Crohn^s disease
     Route: 058
     Dates: start: 20240124

REACTIONS (4)
  - Ileostomy [Unknown]
  - Drug ineffective [Unknown]
  - Viral infection [Unknown]
  - Anal fistula [Unknown]

NARRATIVE: CASE EVENT DATE: 20240101
